FAERS Safety Report 16577693 (Version 2)
Quarter: 2019Q3

REPORT INFORMATION
  Report Type: Spontaneous
  Country: DE (occurrence: DE)
  Receive Date: 20190716
  Receipt Date: 20190819
  Transmission Date: 20191004
  Serious: Yes (Other)
  Sender: FDA-Public Use
  Company Number: DE-MYLANLABS-2019M1064153

PATIENT
  Age: 37 Year
  Sex: Female
  Weight: 120 kg

DRUGS (2)
  1. HEPARIN [Suspect]
     Active Substance: HEPARIN SODIUM
     Indication: PULMONARY EMBOLISM
     Dosage: UNK
     Route: 065
     Dates: start: 20180629
  2. ELIQUIS [Suspect]
     Active Substance: APIXABAN
     Indication: PULMONARY EMBOLISM
     Dosage: 5 MILLIGRAM, BID
     Route: 048
     Dates: start: 20150111, end: 20180628

REACTIONS (4)
  - Premature delivery [Recovered/Resolved]
  - Prescribed overdose [Unknown]
  - Accidental overdose [Recovered/Resolved]
  - Maternal exposure during pregnancy [Recovered/Resolved]
